FAERS Safety Report 8492143-0 (Version None)
Quarter: 2012Q3

REPORT INFORMATION
  Report Type: 
  Country: None (occurrence: None)
  Receive Date: 20120706
  Receipt Date: 20120704
  Transmission Date: 20120928
  Serious: Yes (Other)
  Sender: FDA-Public Use
  Company Number: CL-ROCHE-1084576

PATIENT
  Sex: Male
  Weight: 49 kg

DRUGS (1)
  1. XELODA [Suspect]
     Indication: GASTRIC CANCER
     Route: 048
     Dates: start: 20120626

REACTIONS (4)
  - DIARRHOEA [None]
  - VOMITING [None]
  - ABDOMINAL PAIN [None]
  - NERVOUSNESS [None]
